FAERS Safety Report 24356202 (Version 1)
Quarter: 2024Q3

REPORT INFORMATION
  Report Type: Spontaneous
  Country: US (occurrence: US)
  Receive Date: 20240924
  Receipt Date: 20240924
  Transmission Date: 20241016
  Serious: No
  Sender: BRISTOL MYERS SQUIBB
  Company Number: US-BRISTOL-MYERS SQUIBB COMPANY-2024-150680

PATIENT
  Age: 77 Year
  Sex: Male
  Weight: 68.6 kg

DRUGS (2)
  1. OPDIVO [Suspect]
     Active Substance: NIVOLUMAB
     Indication: Renal cell carcinoma
     Route: 042
     Dates: start: 2022
  2. INSULIN NOS [Concomitant]
     Active Substance: INSULIN NOS
     Indication: Blood pressure measurement

REACTIONS (3)
  - Blood creatine increased [Unknown]
  - Glomerular filtration rate decreased [Unknown]
  - Off label use [Unknown]

NARRATIVE: CASE EVENT DATE: 20240901
